FAERS Safety Report 4728511-X (Version None)
Quarter: 2005Q3

REPORT INFORMATION
  Report Type: 
  Country: None (occurrence: None)
  Receive Date: 20050729
  Receipt Date: 20050310
  Transmission Date: 20060218
  Serious: No
  Sender: FDA-Public Use
  Company Number: US-GLAXOSMITHKLINE-A0549258A

PATIENT
  Age: 65 Year
  Sex: Male

DRUGS (4)
  1. ZANTAC [Suspect]
     Dosage: 300MG TWICE PER DAY
     Route: 048
     Dates: start: 19980301
  2. ZYRTEC [Concomitant]
  3. COUMADIN [Concomitant]
  4. PREDNISONE [Concomitant]

REACTIONS (11)
  - ABDOMINAL PAIN UPPER [None]
  - ABNORMAL DREAMS [None]
  - DRUG INEFFECTIVE [None]
  - EYELID DISORDER [None]
  - FLATULENCE [None]
  - FLUSHING [None]
  - NIGHTMARE [None]
  - PARAESTHESIA [None]
  - PHARMACEUTICAL PRODUCT COMPLAINT [None]
  - SWELLING FACE [None]
  - THERAPEUTIC RESPONSE UNEXPECTED [None]
